FAERS Safety Report 25342508 (Version 1)
Quarter: 2025Q2

REPORT INFORMATION
  Report Type: Spontaneous
  Country: US (occurrence: US)
  Receive Date: 20250521
  Receipt Date: 20250521
  Transmission Date: 20250716
  Serious: No
  Sender: CATALYST PHARMA
  Company Number: US-CATALYST PHARMACEUTICALS-US-CATA-25-00351

PATIENT
  Age: 11 Year
  Sex: Male
  Weight: 42.177 kg

DRUGS (3)
  1. AGAMREE [Suspect]
     Active Substance: VAMOROLONE
     Indication: Duchenne muscular dystrophy
     Dosage: 5.3 ML DAILY
     Route: 048
     Dates: start: 20241116
  2. ENALAPRIL [Concomitant]
     Active Substance: ENALAPRIL
     Indication: Cardiovascular disorder
     Dosage: 2.5 MG DAILY
     Route: 065
  3. VITAMIN D [Concomitant]
     Active Substance: VITAMIN D NOS
     Indication: Hypovitaminosis
     Dosage: 25 MCG DAILY
     Route: 065

REACTIONS (1)
  - Influenza [Recovered/Resolved]

NARRATIVE: CASE EVENT DATE: 20250303
